FAERS Safety Report 7159474-8 (Version None)
Quarter: 2010Q4

REPORT INFORMATION
  Report Type: 
  Country: None (occurrence: None)
  Receive Date: 20101214
  Receipt Date: 20100910
  Transmission Date: 20110411
  Serious: No
  Sender: FDA-Public Use
  Company Number: US-ASTRAZENECA-2010SE42585

PATIENT
  Age: 60 Year
  Sex: Female
  Weight: 59.9 kg

DRUGS (5)
  1. CRESTOR [Suspect]
     Indication: HYPERCHOLESTEROLAEMIA
     Route: 048
     Dates: start: 20060101, end: 20090101
  2. CRESTOR [Suspect]
     Route: 048
     Dates: start: 20090101
  3. NORVASC [Concomitant]
  4. LOVAZA [Concomitant]
  5. SYNTHROID [Concomitant]

REACTIONS (8)
  - DRUG INEFFECTIVE [None]
  - HYPERCHOLESTEROLAEMIA [None]
  - HYPOTHYROIDISM [None]
  - MUSCULAR WEAKNESS [None]
  - MYALGIA [None]
  - NECK PAIN [None]
  - PRURITUS [None]
  - SOMNOLENCE [None]
